FAERS Safety Report 11050522 (Version 1)
Quarter: 2015Q2

REPORT INFORMATION
  Report Type: Spontaneous
  Country: US (occurrence: US)
  Receive Date: 20150421
  Receipt Date: 20150421
  Transmission Date: 20150821
  Serious: No
  Sender: FDA-Public Use
  Company Number: US-ASTRAZENECA-2015SE36761

PATIENT
  Age: 85 Year
  Sex: Female
  Weight: 72.6 kg

DRUGS (2)
  1. CRESTOR [Suspect]
     Active Substance: ROSUVASTATIN CALCIUM
     Indication: BLOOD CHOLESTEROL ABNORMAL
     Route: 048
     Dates: start: 2014, end: 2014
  2. METOPROLOL [Suspect]
     Active Substance: METOPROLOL
     Indication: HYPOTENSION
     Route: 048

REACTIONS (7)
  - Pain in extremity [Unknown]
  - Somnolence [Unknown]
  - Muscular weakness [Unknown]
  - Fatigue [Unknown]
  - Confusional state [Unknown]
  - Musculoskeletal pain [Unknown]
  - Condition aggravated [Unknown]

NARRATIVE: CASE EVENT DATE: 2014
